FAERS Safety Report 13985593 (Version 1)
Quarter: 2017Q3

REPORT INFORMATION
  Report Type: Spontaneous
  Country: US (occurrence: US)
  Receive Date: 20170918
  Receipt Date: 20170918
  Transmission Date: 20171128
  Serious: Yes (Disabling)
  Sender: FDA-Public Use
  Company Number: None

PATIENT
  Age: 52 Year
  Sex: Male
  Weight: 58.5 kg

DRUGS (9)
  1. MAGNESIUM THREONATE [Concomitant]
  2. COCONUT OIL [Concomitant]
     Active Substance: COCONUT OIL
  3. VITAMIN D3 [Concomitant]
     Active Substance: CHOLECALCIFEROL
  4. OREGANO OIL [Concomitant]
  5. LEVAQUIN [Suspect]
     Active Substance: LEVOFLOXACIN
     Indication: EAR DISORDER
     Dosage: ?          QUANTITY:1 INJECTION(S);OTHER FREQUENCY:ONE INJECTION;?
     Route: 058
     Dates: start: 20100315, end: 20121111
  6. VITAMIN C [Concomitant]
     Active Substance: ASCORBIC ACID
  7. CYCLOBENZAPRINE. [Concomitant]
     Active Substance: CYCLOBENZAPRINE
  8. VITAMIN K2 [Concomitant]
     Active Substance: MENAQUINONE 6
  9. LEVAQUIN [Suspect]
     Active Substance: LEVOFLOXACIN
     Indication: SINUSITIS
     Dosage: ?          QUANTITY:1 INJECTION(S);OTHER FREQUENCY:ONE INJECTION;?
     Route: 058
     Dates: start: 20100315, end: 20121111

REACTIONS (13)
  - Swelling [None]
  - Tendon rupture [None]
  - Osteoarthritis [None]
  - Tooth loss [None]
  - Hypersensitivity [None]
  - Blister [None]
  - Scar [None]
  - Myofascial pain syndrome [None]
  - Quality of life decreased [None]
  - Toxicity to various agents [None]
  - Impaired work ability [None]
  - Intervertebral disc degeneration [None]
  - Divorced [None]

NARRATIVE: CASE EVENT DATE: 20100402
